FAERS Safety Report 5687940-0 (Version None)
Quarter: 2008Q1

REPORT INFORMATION
  Report Type: 
  Country: None (occurrence: None)
  Receive Date: 20080328
  Receipt Date: 20080318
  Transmission Date: 20080703
  Serious: Yes (Hospitalization, Other)
  Sender: FDA-Public Use
  Company Number: US-BAYER-200716701NA

PATIENT
  Age: 55 Year
  Sex: Female
  Weight: 82 kg

DRUGS (16)
  1. BETASERON [Suspect]
     Indication: PRIMARY PROGRESSIVE MULTIPLE SCLEROSIS
     Dosage: TOTAL DAILY DOSE: 2 MIU
     Route: 058
     Dates: start: 20071101
  2. BETASERON [Suspect]
     Dosage: TOTAL DAILY DOSE: 8 MIU
     Route: 058
  3. NORVASC [Concomitant]
     Indication: HYPERTENSION
     Dosage: TOTAL DAILY DOSE: 10 MG
     Route: 048
     Dates: start: 20020101
  4. TOPROL [Concomitant]
     Indication: HYPERTENSION
     Dosage: TOTAL DAILY DOSE: 100 MG
     Route: 048
     Dates: start: 20050101
  5. DIOVAN SR [Concomitant]
     Indication: HYPERTENSION
     Route: 048
     Dates: start: 20020101
  6. NEURONTIN [Concomitant]
     Indication: NEURALGIA
     Route: 048
     Dates: start: 20040101
  7. TRAMADOL HCL [Concomitant]
     Indication: PAIN
     Dosage: TOTAL DAILY DOSE: 50 MG
     Route: 048
     Dates: start: 20080101
  8. LORA TAB [Concomitant]
     Indication: PAIN
     Route: 048
     Dates: start: 20050101
  9. BUTALBITAL/APAP [Concomitant]
     Indication: MIGRAINE
     Route: 048
     Dates: start: 20020101
  10. PHENERGAN HCL [Concomitant]
     Indication: NAUSEA
     Route: 048
     Dates: start: 20020101
  11. TRAZODONE HCL [Concomitant]
     Indication: SLEEP DISORDER
     Route: 048
     Dates: start: 20010101
  12. ASCORBIC ACID [Concomitant]
     Indication: MULTIPLE SCLEROSIS
     Dosage: TOTAL DAILY DOSE: 1000 MG
     Route: 048
     Dates: start: 20080101
  13. VITAMIN B-12 [Concomitant]
     Indication: MULTIPLE SCLEROSIS
     Dosage: TOTAL DAILY DOSE: 500 ?G
     Route: 048
     Dates: start: 20080101
  14. CALCIUM WITH VITAMIN D [Concomitant]
     Indication: MULTIPLE SCLEROSIS
     Dosage: TOTAL DAILY DOSE: 1000 MG
     Dates: start: 20080101
  15. MULTI-VITAMIN [Concomitant]
     Indication: MULTIPLE SCLEROSIS
     Dosage: TOTAL DAILY DOSE: 1 DF
     Route: 048
     Dates: start: 20080101
  16. ZANAFLEX [Concomitant]
     Indication: MUSCLE SPASMS
     Dosage: TOTAL DAILY DOSE: 4 MG
     Route: 048
     Dates: start: 20020101

REACTIONS (13)
  - ABDOMINAL PAIN [None]
  - ASTHENIA [None]
  - BLOOD PRESSURE INCREASED [None]
  - DEHYDRATION [None]
  - FLUID OVERLOAD [None]
  - GAIT DISTURBANCE [None]
  - HAEMATEMESIS [None]
  - KIDNEY INFECTION [None]
  - NAUSEA [None]
  - NEUROGENIC BLADDER [None]
  - PYREXIA [None]
  - URINARY TRACT INFECTION [None]
  - VOMITING [None]
